FAERS Safety Report 7451896-0 (Version None)
Quarter: 2011Q2

REPORT INFORMATION
  Report Type: 
  Country: None (occurrence: None)
  Receive Date: 20110502
  Receipt Date: 20110427
  Transmission Date: 20111010
  Serious: Yes (Hospitalization)
  Sender: FDA-Public Use
  Company Number: US-MERCK-1104USA02434

PATIENT
  Age: 59 Year
  Sex: Male

DRUGS (8)
  1. ZETIA [Suspect]
     Indication: BLOOD CHOLESTEROL INCREASED
     Route: 048
     Dates: start: 20090521
  2. CARVEDILOL [Concomitant]
     Route: 065
  3. IBUPROFEN [Concomitant]
     Route: 065
  4. PAROXETINE HYDROCHLORIDE [Concomitant]
     Route: 065
  5. FENTANYL [Concomitant]
     Route: 065
  6. POTASSIUM (UNSPECIFIED) [Concomitant]
     Route: 065
  7. PLAVIX [Concomitant]
     Route: 065
  8. LASIX [Concomitant]
     Route: 065

REACTIONS (1)
  - NEOPLASM MALIGNANT [None]
